FAERS Safety Report 24721837 (Version 1)
Quarter: 2024Q4

REPORT INFORMATION
  Report Type: Spontaneous
  Country: US (occurrence: US)
  Receive Date: 20241211
  Receipt Date: 20241211
  Transmission Date: 20250114
  Serious: Yes (Other)
  Sender: AMGEN
  Company Number: US-AMGEN-USASP2024239892

PATIENT

DRUGS (3)
  1. CARFILZOMIB [Suspect]
     Active Substance: CARFILZOMIB
     Indication: Plasma cell myeloma
     Dosage: UNK, 36 (INITIAL), 45 AND 56 MG/M2 (ADMINISTERED OVER 30 MINUTES ON DAYS 1, 2, 8, 9, 15 AND 16)
     Route: 065
  2. CYCLOPHOSPHAMIDE [Suspect]
     Active Substance: CYCLOPHOSPHAMIDE
     Indication: Plasma cell myeloma
     Dosage: 300 MILLIGRAM/SQ. METER, QWK, ON DAYS 1, 8, 15
     Route: 048
  3. DEXAMETHASONE [Suspect]
     Active Substance: DEXAMETHASONE
     Indication: Plasma cell myeloma
     Dosage: 40 MILLIGRAM, QWK
     Route: 048

REACTIONS (9)
  - Cardiac failure congestive [Unknown]
  - Fatigue [Unknown]
  - Thrombocytopenia [Unknown]
  - Nausea [Unknown]
  - Pulmonary hypertension [Unknown]
  - Dyspnoea [Unknown]
  - Plasma cell myeloma [Unknown]
  - Plasmacytoma [Unknown]
  - Therapy partial responder [Unknown]
